FAERS Safety Report 9827778 (Version 1)
Quarter: 2013Q4

REPORT INFORMATION
  Report Type: Spontaneous
  Country: US (occurrence: None)
  Receive Date: 20131120
  Receipt Date: 20131120
  Transmission Date: 20140711
  Serious: No
  Sender: FDA-Public Use
  Company Number: 1000048711

PATIENT
  Age: 28 Year
  Sex: Male

DRUGS (3)
  1. VIIBRYD (VILAZODONE HYDROCHLORIDE (10 MILLIGRAM, TABLETS) [Suspect]
     Indication: DEPRESSION
     Route: 048
     Dates: start: 2013, end: 2013
  2. VIIBRYD (VILAZODONE HYDROCHLORIDE (40 MILLIGRAM, TABLETS) [Suspect]
     Indication: DEPRESSION
     Route: 048
     Dates: start: 2013, end: 2013
  3. GABAPENTIN (GABAPENTIN) [Suspect]
     Indication: NEURALGIA

REACTIONS (1)
  - Diarrhoea [None]
